FAERS Safety Report 6248177-X (Version None)
Quarter: 2009Q2

REPORT INFORMATION
  Report Type: 
  Country: None (occurrence: None)
  Receive Date: 20090624
  Receipt Date: 20090624
  Transmission Date: 20091009
  Serious: Yes (Hospitalization)
  Sender: FDA-Public Use
  Company Number: None

PATIENT
  Sex: Female
  Weight: 19.9583 kg

DRUGS (1)
  1. BACTRIM [Suspect]
     Indication: STAPHYLOCOCCAL ABSCESS
     Dosage: WAS GIVEN AT CLINIC - PO X 1 DOSE
     Route: 048
     Dates: start: 20090606

REACTIONS (5)
  - EYELID OEDEMA [None]
  - HEADACHE [None]
  - HEART RATE INCREASED [None]
  - OROPHARYNGEAL PAIN [None]
  - TREMOR [None]
